FAERS Safety Report 9127081 (Version 2)
Quarter: 2013Q2

REPORT INFORMATION
  Report Type: Spontaneous
  Country: SE (occurrence: SE)
  Receive Date: 20130228
  Receipt Date: 20130405
  Transmission Date: 20140414
  Serious: Yes (Other)
  Sender: FDA-Public Use
  Company Number: SE-UCBSA-079220

PATIENT
  Age: 72 Year
  Sex: Female

DRUGS (8)
  1. NEUPRO [Suspect]
     Indication: PARKINSON^S DISEASE
     Route: 062
     Dates: start: 20121120, end: 201212
  2. NEUPRO [Suspect]
     Indication: PARKINSON^S DISEASE
     Route: 062
     Dates: start: 20120920, end: 2012
  3. NEUPRO [Suspect]
     Indication: PARKINSON^S DISEASE
     Route: 062
     Dates: start: 20120601, end: 2012
  4. MADOPARK QUICK MITE [Concomitant]
     Indication: PARKINSON^S DISEASE
     Dosage: UNKNOWN DOSE
  5. SINEMET [Concomitant]
     Indication: PARKINSON^S DISEASE
     Dosage: UNKNOWN DOSE
  6. AZILECT [Concomitant]
     Indication: PARKINSON^S DISEASE
     Dosage: UNKNOWN DOSE
  7. SIFROL [Concomitant]
     Indication: PARKINSON^S DISEASE
     Dosage: UNKNOWN DOSE
  8. COMTESS [Concomitant]
     Indication: PARKINSON^S DISEASE
     Dosage: UNKNOWN DOSE

REACTIONS (2)
  - Angioedema [Recovered/Resolved]
  - Lip oedema [Recovered/Resolved]
